FAERS Safety Report 13725877 (Version 2)
Quarter: 2017Q3

REPORT INFORMATION
  Report Type: Spontaneous
  Country: JP (occurrence: JP)
  Receive Date: 20170706
  Receipt Date: 20170707
  Transmission Date: 20171127
  Serious: Yes (Death, Other)
  Sender: FDA-Public Use
  Company Number: PHHY2017JP084362

PATIENT
  Age: 84 Year
  Sex: Female

DRUGS (2)
  1. PREDNISOLONE. [Concomitant]
     Active Substance: PREDNISOLONE
     Indication: PRODUCT USED FOR UNKNOWN INDICATION
     Route: 065
  2. METHOTREXATE. [Suspect]
     Active Substance: METHOTREXATE
     Indication: RHEUMATOID ARTHRITIS
     Dosage: 2 OR 3 DOSES EVERY 12 H
     Route: 048
     Dates: start: 2004, end: 201008

REACTIONS (5)
  - Disease progression [Fatal]
  - Anaemia [Unknown]
  - Neutropenia [Unknown]
  - Myelodysplastic syndrome [Fatal]
  - Acute myeloid leukaemia [Fatal]
